FAERS Safety Report 14340737 (Version 3)
Quarter: 2018Q1

REPORT INFORMATION
  Report Type: Report from Study
  Country: US (occurrence: US)
  Receive Date: 20180101
  Receipt Date: 20180209
  Transmission Date: 20180509
  Serious: Yes (Death, Hospitalization, Other)
  Sender: FDA-Public Use
  Company Number: US-AMGEN-USASL2017192009

PATIENT
  Age: 73 Year
  Sex: Male
  Weight: 99.77 kg

DRUGS (1)
  1. PROCRIT [Suspect]
     Active Substance: ERYTHROPOIETIN
     Indication: PRODUCT USED FOR UNKNOWN INDICATION
     Dosage: UNK
     Route: 065

REACTIONS (5)
  - Gangrene [Fatal]
  - Acute myocardial infarction [Fatal]
  - Chronic kidney disease [Fatal]
  - Respiratory failure [Fatal]
  - Peripheral arterial occlusive disease [Fatal]
